FAERS Safety Report 7795845-4 (Version None)
Quarter: 2011Q4

REPORT INFORMATION
  Report Type: 
  Country: None (occurrence: None)
  Receive Date: 20111004
  Receipt Date: 20110926
  Transmission Date: 20120403
  Serious: Yes (Other)
  Sender: FDA-Public Use
  Company Number: PHHY2011IR85242

PATIENT
  Age: 29 Year
  Sex: Male

DRUGS (2)
  1. PEGINTERFERON ALFA-2B [Suspect]
     Indication: HEPATITIS C
     Dosage: 120 UG/WEEK
  2. RIBAVIRIN [Suspect]
     Indication: HEPATITIS C
     Dosage: 800 MG/DAY

REACTIONS (3)
  - VIITH NERVE PARALYSIS [None]
  - HYPOTONIA [None]
  - EYELID FUNCTION DISORDER [None]
